FAERS Safety Report 20704215 (Version 3)
Quarter: 2022Q3

REPORT INFORMATION
  Report Type: Report from Study
  Country: EG (occurrence: EG)
  Receive Date: 20220413
  Receipt Date: 20220623
  Transmission Date: 20221027
  Serious: Yes (Death, Hospitalization)
  Sender: FDA-Public Use
  Company Number: EG-NOVARTISPH-NVSC2022EG083659

PATIENT
  Sex: Female

DRUGS (1)
  1. HYRIMOZ [Suspect]
     Active Substance: ADALIMUMAB-ADAZ
     Indication: Product used for unknown indication
     Dosage: UNK
     Route: 058

REACTIONS (6)
  - Death [Fatal]
  - Coma [Unknown]
  - Eating disorder [Unknown]
  - Psoriasis [Unknown]
  - Mental disorder [Unknown]
  - Drug ineffective [Unknown]
